FAERS Safety Report 8801102 (Version 3)
Quarter: 2012Q4

REPORT INFORMATION
  Report Type: Report from Study
  Country: IN (occurrence: US)
  Receive Date: 20120921
  Receipt Date: 20121029
  Transmission Date: 20130627
  Serious: Yes (Death, Hospitalization, Other)
  Sender: FDA-Public Use
  Company Number: US-BRISTOL-MYERS SQUIBB COMPANY-15259203

PATIENT
  Age: 68 Year
  Sex: Female

DRUGS (1)
  1. IPILIMUMAB [Suspect]
     Indication: MALIGNANT MELANOMA
     Dosage: No.of courses:3
     Route: 042
     Dates: start: 20100611, end: 20100723

REACTIONS (5)
  - Malignant neoplasm progression [Fatal]
  - Diarrhoea [Recovered/Resolved]
  - Back pain [Unknown]
  - Pathological fracture [Recovered/Resolved]
  - Nerve root compression [Unknown]
